FAERS Safety Report 7866042-9 (Version None)
Quarter: 2011Q4

REPORT INFORMATION
  Report Type: 
  Country: None (occurrence: None)
  Receive Date: 20111028
  Receipt Date: 20110413
  Transmission Date: 20120403
  Serious: No
  Sender: FDA-Public Use
  Company Number: US-GLAXOSMITHKLINE-A0922850A

PATIENT
  Age: 45 Year
  Sex: Female

DRUGS (4)
  1. ANTIBIOTIC [Concomitant]
  2. ADVAIR DISKUS 100/50 [Suspect]
     Indication: NASOPHARYNGITIS
     Dosage: 1PUFF TWICE PER DAY
     Route: 055
     Dates: start: 20110201
  3. SINGULAIR [Concomitant]
  4. RHINOCORT [Concomitant]

REACTIONS (2)
  - THROAT IRRITATION [None]
  - DRY THROAT [None]
